FAERS Safety Report 24642875 (Version 2)
Quarter: 2025Q1

REPORT INFORMATION
  Report Type: Report from Study
  Country: US (occurrence: US)
  Receive Date: 20241120
  Receipt Date: 20250110
  Transmission Date: 20250409
  Serious: Yes (Hospitalization)
  Sender: PAREXEL
  Company Number: US-Stemline Therapeutics, Inc.-2024ST003556

PATIENT

DRUGS (2)
  1. ORSERDU [Suspect]
     Active Substance: ELACESTRANT
     Indication: Neoplasm malignant
     Dosage: 345 MG, DAILY
     Route: 048
     Dates: start: 20240412
  2. ORSERDU [Suspect]
     Active Substance: ELACESTRANT
     Dosage: 345 MG, DAILY
     Route: 048

REACTIONS (4)
  - Pneumonia [Unknown]
  - Metastases to bone [Unknown]
  - Product dose omission in error [Unknown]
  - Overdose [Unknown]
